FAERS Safety Report 9223243 (Version 1)
Quarter: 2013Q2

REPORT INFORMATION
  Report Type: Spontaneous
  Country: US (occurrence: None)
  Receive Date: 20130409
  Receipt Date: 20130409
  Transmission Date: 20140414
  Serious: Yes (Disabling, Other)
  Sender: FDA-Public Use
  Company Number: None

PATIENT
  Age: 70 Year
  Sex: Female
  Weight: 84.82 kg

DRUGS (1)
  1. CIPROFLOXACN [Suspect]
     Indication: SINUSITIS
     Route: 048
     Dates: start: 20130311, end: 20130318

REACTIONS (4)
  - Tendon pain [None]
  - Arthralgia [None]
  - Suicidal ideation [None]
  - Thinking abnormal [None]
